FAERS Safety Report 17605882 (Version 1)
Quarter: 2020Q1

REPORT INFORMATION
  Report Type: Spontaneous
  Country: US (occurrence: US)
  Receive Date: 20200331
  Receipt Date: 20200331
  Transmission Date: 20200409
  Serious: Yes (Other)
  Sender: FDA-Public Use
  Company Number: US-BRISTOL-MYERS SQUIBB COMPANY-BMS-2020-025471

PATIENT
  Sex: Female
  Weight: 47.17 kg

DRUGS (1)
  1. ELIQUIS [Suspect]
     Active Substance: APIXABAN
     Indication: PULMONARY EMBOLISM
     Dosage: 5 MILLIGRAM, BID
     Route: 048
     Dates: start: 202001

REACTIONS (4)
  - Inappropriate schedule of product administration [Unknown]
  - Pulmonary fibrosis [Unknown]
  - Cough [Unknown]
  - Visual impairment [Unknown]
